FAERS Safety Report 18991204 (Version 2)
Quarter: 2021Q2

REPORT INFORMATION
  Report Type: Report from Study
  Country: DE (occurrence: DE)
  Receive Date: 20210310
  Receipt Date: 20210420
  Transmission Date: 20210717
  Serious: Yes (Hospitalization, Other)
  Sender: FDA-Public Use
  Company Number: DE-SA-2021SA079940

PATIENT
  Age: 82 Year
  Sex: Female
  Weight: 68 kg

DRUGS (26)
  1. AFLIBERCEPT [Suspect]
     Active Substance: AFLIBERCEPT
     Dosage: 270 MG, QOW
     Route: 042
     Dates: start: 20210216, end: 20210216
  2. MACROGOL [Concomitant]
     Active Substance: POLYETHYLENE GLYCOLS
     Indication: CONSTIPATION
     Dosage: UNK, BID;(FREQUENCY: 1?0?1?0)
     Route: 048
  3. RAMIPRIL. [Concomitant]
     Active Substance: RAMIPRIL
     Indication: HYPERTENSION
     Dosage: 5MG BID, FREQUENCY: 1?0?1?0
     Route: 048
  4. KREON [Concomitant]
     Active Substance: PANCRELIPASE
     Indication: PANCREATIC CARCINOMA
     Dosage: 25000 , FREQUENCY: 1?1?1?0; TID
     Route: 048
     Dates: start: 202007
  5. TORASEMIDE [Concomitant]
     Active Substance: TORSEMIDE
     Indication: HYPERTENSION
     Dosage: 5 MG,FREQUENCY: ??0?0?0
  6. AFLIBERCEPT [Suspect]
     Active Substance: AFLIBERCEPT
     Indication: ADENOCARCINOMA OF COLON
     Dosage: 270 MG, QOW
     Route: 042
     Dates: start: 20210302, end: 20210302
  7. CALCIUM LEVOFOLINATE [Suspect]
     Active Substance: LEVOLEUCOVORIN CALCIUM
     Dosage: 560 MG, QOW
     Route: 042
     Dates: start: 20210216, end: 20210216
  8. NOVORAPID [Concomitant]
     Active Substance: INSULIN ASPART
     Indication: DIABETES MELLITUS
     Dosage: UNK UNK, PRN,100E/ML, FREQUENCY: ON DEMAND
     Route: 058
     Dates: start: 202007
  9. CLOPIDOGREL [Concomitant]
     Active Substance: CLOPIDOGREL BISULFATE
     Indication: HYPERTENSION
     Dosage: FREQUENCY: 0?1?0?0 (QD)
     Route: 048
  10. TRESIBA [Concomitant]
     Active Substance: INSULIN DEGLUDEC
     Indication: DIABETES MELLITUS
     Dosage: UNK UNK, PRN,200E/ML, FREQUENCY: ON DEMAND
     Route: 058
     Dates: start: 2020
  11. MOXONIDINE [Concomitant]
     Active Substance: MOXONIDINE
     Indication: HYPERTENSION
     Dosage: 0.2 MG QD, FREQUENCY: 1?0?1,
     Route: 048
     Dates: start: 202103
  12. HCT [Concomitant]
     Active Substance: HYDROCHLOROTHIAZIDE
     Indication: HYPERTENSION
     Dosage: 25 MG QD; FREQUENCY: 1?0?0
     Route: 048
     Dates: start: 202103
  13. 5?FU [Suspect]
     Active Substance: FLUOROURACIL
     Dosage: 3100 MG, QOW
     Route: 042
     Dates: start: 20210301, end: 20210301
  14. BISOPROLOL [Concomitant]
     Active Substance: BISOPROLOL
     Dosage: 2.5MG, FREQUENCY: 1?0?0
     Route: 048
     Dates: start: 20210222
  15. NITROLINGUAL [Concomitant]
     Active Substance: NITROGLYCERIN
     Indication: ANGINA PECTORIS
     Dosage: UNK UNK, PRN,FREQUENCY: ON DEMAND
     Route: 048
     Dates: start: 20210218
  16. LERCANIDIPINE [Concomitant]
     Active Substance: LERCANIDIPINE
     Indication: HYPERTENSION
     Dosage: FREQUENCY: 0?1?0?0
     Route: 048
  17. VIGANTOLETTEN [Concomitant]
     Active Substance: CHOLECALCIFEROL
     Indication: PROPHYLAXIS
     Dosage: 1000 IU, QD,FREQUENCY: 1?0?0?0
     Route: 048
  18. TORASEMIDE [Concomitant]
     Active Substance: TORSEMIDE
     Dosage: 10 MG, QD FREQUENCY: 1?0?0?0
     Route: 048
  19. 5?FU [Suspect]
     Active Substance: FLUOROURACIL
     Dosage: 3100 MG, QOW
     Route: 042
     Dates: start: 20210216, end: 20210216
  20. 5?FU [Suspect]
     Active Substance: FLUOROURACIL
     Indication: ADENOCARCINOMA OF COLON
     Dosage: 3100 MG, QOW
     Route: 042
     Dates: start: 20210302, end: 20210302
  21. BISOPROLOL [Concomitant]
     Active Substance: BISOPROLOL
     Indication: HYPERTENSION
     Dosage: 5 MG, PRN,FREQUENCY: ON DEMAND
     Route: 048
     Dates: start: 20210222
  22. VIGANTOLETTEN [Concomitant]
     Active Substance: CHOLECALCIFEROL
     Dosage: 10001E; FREQUENCY: 1?0?0?0 (QD)
     Route: 048
  23. SIMVASTATIN. [Concomitant]
     Active Substance: SIMVASTATIN
     Indication: HYPERCHOLESTEROLAEMIA
     Dosage: 40 MG,FREQUENCY: 1?0?1/2 ?0
     Route: 048
  24. NOVAMINSULFON [Concomitant]
     Active Substance: METAMIZOLE
     Indication: TUMOUR PAIN
     Dosage: FREQUENCY: 20?20?20?0
     Route: 048
  25. CALCIUM LEVOFOLINATE [Suspect]
     Active Substance: LEVOLEUCOVORIN CALCIUM
     Indication: ADENOCARCINOMA OF COLON
     Dosage: 560 MG, QOW
     Route: 042
     Dates: start: 20210302, end: 20210302
  26. PANTOPRAZOL [PANTOPRAZOLE] [Concomitant]
     Active Substance: PANTOPRAZOLE
     Indication: PROPHYLAXIS
     Dosage: 20 MG, QD,FREQUENCY: 1?0?0?0
     Route: 048

REACTIONS (2)
  - Syncope [Recovered/Resolved]
  - Muscular weakness [Recovered/Resolved]

NARRATIVE: CASE EVENT DATE: 20210303
